FAERS Safety Report 4412392-8 (Version None)
Quarter: 2004Q3

REPORT INFORMATION
  Report Type: 
  Country: None (occurrence: None)
  Receive Date: 20040727
  Receipt Date: 20040713
  Transmission Date: 20050211
  Serious: Yes (Hospitalization)
  Sender: FDA-Public Use
  Company Number: US-JNJFOC-20040600884

PATIENT
  Age: 72 Year
  Sex: Male

DRUGS (7)
  1. INFLIXIMAB (INFLIXIMAB, RECOMBINANT) LYOPHILIZED POWDER [Suspect]
     Indication: RHEUMATOID ARTHRITIS
     Dosage: 100 MG, INTRAVENOUS; 300 MG, INTRAVENOUS
     Route: 042
     Dates: start: 20030301
  2. INFLIXIMAB (INFLIXIMAB, RECOMBINANT) LYOPHILIZED POWDER [Suspect]
     Indication: RHEUMATOID ARTHRITIS
     Dosage: 100 MG, INTRAVENOUS; 300 MG, INTRAVENOUS
     Route: 042
     Dates: start: 20040427
  3. METHOTREXATE [Suspect]
     Dosage: 25 MG/ML
  4. LISINOPRIL [Suspect]
     Dosage: 10 MG, IN 1 DAY
     Dates: start: 20031201
  5. ATENOLOL [Suspect]
     Dosage: 50 MG, IN 1 DAY
  6. NEXIUM [Suspect]
     Dosage: 40 MG, INJECTION
     Dates: start: 20020901
  7. PRENATAL VITAMIN (PRENATAL VITAMINS) TABLETS [Suspect]
     Dosage: IN 1 DAY
     Dates: start: 19890301

REACTIONS (5)
  - HAEMATOCRIT DECREASED [None]
  - LUNG NEOPLASM [None]
  - PNEUMOCYSTIS CARINII PNEUMONIA [None]
  - PNEUMONIA [None]
  - SLEEP APNOEA SYNDROME [None]
